FAERS Safety Report 7813020-1 (Version None)
Quarter: 2011Q4

REPORT INFORMATION
  Report Type: 
  Country: None (occurrence: None)
  Receive Date: 20111013
  Receipt Date: 20111006
  Transmission Date: 20120403
  Serious: Yes (Hospitalization, Other)
  Sender: FDA-Public Use
  Company Number: BE-BAYER-2011-096530

PATIENT
  Age: 46 Year
  Sex: Female

DRUGS (3)
  1. COMBIVENT [Concomitant]
  2. CLOPERASTINE [Concomitant]
  3. MOXIFLOXACIN [Suspect]
     Indication: BRONCHITIS
     Dosage: UNK, QD
     Route: 048
     Dates: start: 20110928, end: 20111001

REACTIONS (1)
  - RETINAL DETACHMENT [None]
